FAERS Safety Report 5258897-1 (Version None)
Quarter: 2007Q1

REPORT INFORMATION
  Report Type: 
  Country: None (occurrence: None)
  Receive Date: 20070305
  Receipt Date: 20070220
  Transmission Date: 20070707
  Serious: Yes (Hospitalization)
  Sender: FDA-Public Use
  Company Number: 2007BI003852

PATIENT
  Sex: Female
  Weight: 92.9874 kg

DRUGS (4)
  1. AVONEX [Suspect]
     Indication: MULTIPLE SCLEROSIS
     Dosage: IM
     Route: 030
     Dates: end: 20070101
  2. DOLOPHINE HCL [Concomitant]
  3. VALIUM [Concomitant]
  4. LIORESAL [Concomitant]

REACTIONS (2)
  - DELUSIONAL DISORDER, UNSPECIFIED TYPE [None]
  - MENTAL STATUS CHANGES [None]
